FAERS Safety Report 20695484 (Version 2)
Quarter: 2022Q2

REPORT INFORMATION
  Report Type: Spontaneous
  Country: US (occurrence: US)
  Receive Date: 20220411
  Receipt Date: 20220513
  Transmission Date: 20220721
  Serious: No
  Sender: FDA-Public Use
  Company Number: US-CHEMOCENTRYX, INC.-2022USCCXI0037

PATIENT

DRUGS (1)
  1. TAVNEOS [Suspect]
     Active Substance: AVACOPAN
     Indication: Product used for unknown indication
     Dosage: 30 MG, 2X/DAY WITH FOOD
     Route: 048
     Dates: start: 20220205

REACTIONS (5)
  - Eye pain [Not Recovered/Not Resolved]
  - Lacrimation increased [Not Recovered/Not Resolved]
  - Abdominal pain upper [Not Recovered/Not Resolved]
  - Diarrhoea [Not Recovered/Not Resolved]
  - Headache [Not Recovered/Not Resolved]

NARRATIVE: CASE EVENT DATE: 20220207
